FAERS Safety Report 19482402 (Version 1)
Quarter: 2021Q3

REPORT INFORMATION
  Report Type: Spontaneous
  Country: US (occurrence: US)
  Receive Date: 20210701
  Receipt Date: 20210701
  Transmission Date: 20211014
  Serious: Yes (Other)
  Sender: FDA-Public Use
  Company Number: US-FRESENIUS KABI-FK202106683

PATIENT
  Age: 23 Month
  Sex: Female

DRUGS (8)
  1. ETOPOSIDE (MANUFACTURER UNKNOWN) [Suspect]
     Active Substance: ETOPOSIDE
     Indication: MEDULLOBLASTOMA
     Dosage: (DAY 1?3) ON WEEK 1 AND WEEK 7
     Route: 042
  2. VINCRISTINE [Suspect]
     Active Substance: VINCRISTINE
     Indication: MEDULLOBLASTOMA
     Dosage: DAY 1 ON WEEK 1 AND WEEK 7
     Route: 042
  3. CYCLOPHOSPHAMIDE. [Suspect]
     Active Substance: CYCLOPHOSPHAMIDE
     Indication: MEDULLOBLASTOMA
     Dosage: (DAY 1?3) ON WEEK 1 AND WEEK 7
     Route: 042
  4. CARBOPLATIN (MANUFACTURER UNKNOWN) [Suspect]
     Active Substance: CARBOPLATIN
     Indication: MEDULLOBLASTOMA
     Dosage: DAY 1?3 ON WEEK 1 AND WEEK 7
     Route: 042
  5. METHOTREXATE (MANUFACTURER UNKNOWN) [Suspect]
     Active Substance: METHOTREXATE
     Indication: MEDULLOBLASTOMA
     Dosage: DAY 1?4 ON WEEK 1 AND WEEK 7
     Route: 037
  6. VINCRISTINE [Suspect]
     Active Substance: VINCRISTINE
     Dosage: DAY 1 ON ON WEEK 3 AND WEEK 5
     Route: 042
  7. NO DRUG NAME [Concomitant]
     Active Substance: UNSPECIFIED INGREDIENT
     Indication: SEDATIVE THERAPY
  8. METHOTREXATE (MANUFACTURER UNKNOWN) [Suspect]
     Active Substance: METHOTREXATE
     Dosage: ON WEEK 3 AND WEEK 5, (HIGH DOSE)
     Route: 041

REACTIONS (3)
  - Pancytopenia [Recovered/Resolved]
  - Pyrexia [Recovered/Resolved]
  - Deafness [Not Recovered/Not Resolved]
